FAERS Safety Report 8811838 (Version 1)
Quarter: 2012Q4

REPORT INFORMATION
  Report Type: 
  Country: GB (occurrence: GB)
  Receive Date: 20120927
  Receipt Date: 20120927
  Transmission Date: 20130627
  Serious: Yes (Disabling)
  Sender: FDA-Public Use
  Company Number: GB-GLAXOSMITHKLINE-B0831648A

PATIENT
  Age: 69 Year
  Sex: Female

DRUGS (9)
  1. ROPINIROLE [Suspect]
     Indication: RESTLESS LEGS SYNDROME
     Route: 048
     Dates: start: 20120823, end: 20120907
  2. SIMVASTATIN [Concomitant]
     Dosage: 20MG Per day
     Dates: start: 20120903
  3. RAMIPRIL [Concomitant]
     Dosage: 2.5MG Per day
     Dates: start: 20120903
  4. ETORICOXIB [Concomitant]
     Dosage: 90MG Per day
     Dates: start: 20120903
  5. PARACETAMOL [Concomitant]
     Indication: PAIN
     Dosage: 4G Per day
     Dates: start: 20120903
  6. FUROSEMIDE [Concomitant]
     Dosage: 40MG Per day
     Dates: start: 20120903
  7. SALBUTAMOL [Concomitant]
     Route: 055
     Dates: start: 20120903
  8. AZATHIOPRINE [Concomitant]
     Dosage: 100MG Per day
     Dates: start: 20120903
  9. ACETYLCYSTEINE [Concomitant]
     Dosage: 1200MG Per day
     Dates: start: 20120903

REACTIONS (2)
  - Pruritus generalised [Not Recovered/Not Resolved]
  - Insomnia [Unknown]
